FAERS Safety Report 16577552 (Version 1)
Quarter: 2019Q3

REPORT INFORMATION
  Report Type: Spontaneous
  Country: PT (occurrence: PT)
  Receive Date: 20190716
  Receipt Date: 20190716
  Transmission Date: 20191004
  Serious: Yes (Other)
  Sender: FDA-Public Use
  Company Number: PHHY2019PT161649

PATIENT
  Age: 68 Year
  Sex: Female

DRUGS (4)
  1. AZOPT [Suspect]
     Active Substance: BRINZOLAMIDE
     Indication: GLAUCOMA
     Dosage: 2 DF, QD
     Route: 047
     Dates: start: 201904, end: 201906
  2. FILOTEMPO [Concomitant]
     Indication: ASTHMA
     Dosage: 450 MG, QD
     Route: 048
  3. SINGULAIR [Concomitant]
     Active Substance: MONTELUKAST SODIUM
     Indication: ASTHMA
     Dosage: 10 MG, QD
     Route: 048
  4. XALATAN [Concomitant]
     Active Substance: LATANOPROST
     Indication: GLAUCOMA
     Dosage: UNK
     Route: 047

REACTIONS (5)
  - Ocular hyperaemia [Recovered/Resolved]
  - Haematemesis [Recovered/Resolved]
  - Epistaxis [Recovered/Resolved]
  - Eyelid disorder [Recovered/Resolved]
  - Blood pressure increased [Recovered/Resolved]

NARRATIVE: CASE EVENT DATE: 201904
